FAERS Safety Report 8223092-0 (Version None)
Quarter: 2012Q1

REPORT INFORMATION
  Report Type: 
  Country: None (occurrence: None)
  Receive Date: 20120321
  Receipt Date: 20120316
  Transmission Date: 20120608
  Serious: No
  Sender: FDA-Public Use
  Company Number: US-BIOGENIDEC-2012BI005823

PATIENT
  Age: 25 Year
  Sex: Female

DRUGS (2)
  1. TYSABRI [Suspect]
     Indication: MULTIPLE SCLEROSIS
     Route: 042
     Dates: start: 20111216
  2. ADDERALL 5 [Concomitant]
     Indication: FATIGUE

REACTIONS (6)
  - ARTHRALGIA [None]
  - OEDEMA PERIPHERAL [None]
  - BLISTER [None]
  - HEADACHE [None]
  - FATIGUE [None]
  - DEPRESSED MOOD [None]
